FAERS Safety Report 6401617-5 (Version None)
Quarter: 2009Q4

REPORT INFORMATION
  Report Type: 
  Country: None (occurrence: None)
  Receive Date: 20091015
  Receipt Date: 20090723
  Transmission Date: 20100525
  Serious: Yes (Death)
  Sender: FDA-Public Use
  Company Number: FR-AVENTIS-200917484GDDC

PATIENT
  Age: 72 Year
  Sex: Male

DRUGS (17)
  1. GRANOCYTE [Suspect]
     Indication: NEUTROPENIA
     Dosage: DOSE: UNK
     Route: 042
     Dates: start: 20080401
  2. TAXOTERE [Suspect]
     Indication: SARCOMA
     Route: 042
     Dates: start: 20080304, end: 20080304
  3. TAXOTERE [Suspect]
     Route: 042
     Dates: start: 20080401, end: 20080401
  4. TAXOTERE [Suspect]
     Route: 042
     Dates: start: 20080422, end: 20080422
  5. TAXOTERE [Suspect]
     Route: 042
     Dates: start: 20090513, end: 20090513
  6. GEMZAR [Suspect]
     Indication: SARCOMA
     Route: 042
     Dates: start: 20080226, end: 20080226
  7. GEMZAR [Suspect]
     Route: 042
     Dates: start: 20080304, end: 20080304
  8. GEMZAR [Suspect]
     Route: 042
     Dates: start: 20080325, end: 20080325
  9. GEMZAR [Suspect]
     Route: 042
     Dates: start: 20080401, end: 20080401
  10. GEMZAR [Suspect]
     Route: 042
     Dates: start: 20080415, end: 20080415
  11. GEMZAR [Suspect]
     Route: 042
     Dates: start: 20090422, end: 20090422
  12. GEMZAR [Suspect]
     Route: 042
     Dates: start: 20090506, end: 20090506
  13. GEMZAR [Suspect]
     Route: 042
     Dates: start: 20080513, end: 20080513
  14. MEDROL [Concomitant]
     Dosage: DOSE: UNK
  15. ZOPHREN                            /00955301/ [Concomitant]
     Dosage: DOSE: UNK
  16. MOTILYO [Concomitant]
     Dosage: DOSE: UNK
  17. DUPHALAC [Concomitant]
     Dosage: DOSE: UNK

REACTIONS (1)
  - INTERSTITIAL LUNG DISEASE [None]
